FAERS Safety Report 8250424-X (Version None)
Quarter: 2012Q1

REPORT INFORMATION
  Report Type: 
  Country: None (occurrence: None)
  Receive Date: 20120328
  Receipt Date: 20120319
  Transmission Date: 20120608
  Serious: Yes (Other)
  Sender: FDA-Public Use
  Company Number: 2012-027540

PATIENT
  Age: 64 Year
  Sex: Female
  Weight: 61 kg

DRUGS (2)
  1. ASPIRIN [Suspect]
     Indication: ANALGESIC THERAPY
     Dosage: 1 DF, ONCE, ORAL
     Route: 048
     Dates: start: 20120318
  2. SYNTHROID [Concomitant]

REACTIONS (4)
  - THROAT IRRITATION [None]
  - COLD SWEAT [None]
  - ARTHROPATHY [None]
  - THYROID PAIN [None]
